FAERS Safety Report 5457924-6 (Version None)
Quarter: 2007Q3

REPORT INFORMATION
  Report Type: 
  Country: None (occurrence: None)
  Receive Date: 20070917
  Receipt Date: 20070909
  Transmission Date: 20080115
  Serious: Yes (Hospitalization)
  Sender: FDA-Public Use
  Company Number: 2007SP018084

PATIENT
  Age: 52 Year
  Sex: Female

DRUGS (2)
  1. PEG-INTRON (PEGINTERFERON ALFA-2B) [Suspect]
     Indication: HEPATITIS C
     Dates: start: 20070730
  2. RIBASPHERE [Suspect]
     Indication: HEPATITIS C
     Dates: start: 20070730

REACTIONS (4)
  - AMMONIA INCREASED [None]
  - HEPATIC ATROPHY [None]
  - PLATELET COUNT DECREASED [None]
  - SPLENOMEGALY [None]
